FAERS Safety Report 9579608 (Version 2)
Quarter: 2013Q4

REPORT INFORMATION
  Report Type: Spontaneous
  Country: US (occurrence: US)
  Receive Date: 20131001
  Receipt Date: 20131001
  Transmission Date: 20140711
  Serious: No
  Sender: FDA-Public Use
  Company Number: US-AMGEN-USASP2013025266

PATIENT
  Age: 81 Year
  Sex: Female
  Weight: 61.68 kg

DRUGS (5)
  1. PROCRIT [Suspect]
     Indication: SIDEROBLASTIC ANAEMIA
     Dosage: 60000 UNIT, QWK
  2. VITAMIN B12                        /00056201/ [Suspect]
     Dosage: UNK UNK, QWK
  3. VITAMINS                           /90003601/ [Concomitant]
     Dosage: UNK
  4. ALPRAZOLAM [Concomitant]
     Indication: INSOMNIA
     Dosage: 1 MG, QD TO NIGHT
     Route: 048
     Dates: start: 2007
  5. BUTALBITAL [Concomitant]
     Indication: HEADACHE
     Dosage: UNK UNK, AS NECESSARY 1 -2 EVERY 4 HOUR
     Route: 048

REACTIONS (7)
  - Pain [Recovered/Resolved]
  - Papule [Recovered/Resolved]
  - Adverse reaction [Not Recovered/Not Resolved]
  - Pruritus [Not Recovered/Not Resolved]
  - Local swelling [Unknown]
  - Insomnia [Unknown]
  - Urticaria [Not Recovered/Not Resolved]
